APPROVED DRUG PRODUCT: TRAZODONE HYDROCHLORIDE
Active Ingredient: TRAZODONE HYDROCHLORIDE
Strength: 300MG
Dosage Form/Route: TABLET;ORAL
Application: A211116 | Product #004 | TE Code: AB
Applicant: CROSSMEDIKA SA
Approved: May 20, 2024 | RLD: No | RS: No | Type: RX